FAERS Safety Report 9303706 (Version 1)
Quarter: 2013Q2

REPORT INFORMATION
  Report Type: Spontaneous
  Country: US (occurrence: US)
  Receive Date: 20130522
  Receipt Date: 20130522
  Transmission Date: 20140414
  Serious: Yes (Hospitalization)
  Sender: FDA-Public Use
  Company Number: US-GLAXOSMITHKLINE-A0783348A

PATIENT
  Age: 68 Year
  Sex: Female

DRUGS (1)
  1. AVANDIA [Suspect]
     Indication: TYPE 2 DIABETES MELLITUS
     Dosage: 8U PER DAY
     Route: 048
     Dates: start: 20000328, end: 20020926

REACTIONS (6)
  - Transient ischaemic attack [Unknown]
  - Visual acuity reduced [Unknown]
  - Macular degeneration [Unknown]
  - Joint swelling [Unknown]
  - Amnesia [Unknown]
  - Dyspnoea [Unknown]
